FAERS Safety Report 23857222 (Version 2)
Quarter: 2024Q2

REPORT INFORMATION
  Report Type: Spontaneous
  Country: US (occurrence: US)
  Receive Date: 20240515
  Receipt Date: 20240527
  Transmission Date: 20240715
  Serious: Yes (Other)
  Sender: FDA-Public Use
  Company Number: US-COSETTE-CP2024US000064

PATIENT
  Age: 40 Year
  Sex: Female
  Weight: 160 kg

DRUGS (1)
  1. VYLEESI [Suspect]
     Active Substance: BREMELANOTIDE ACETATE
     Indication: Sexual dysfunction
     Dosage: 1.75MG/0.3ML
     Route: 058

REACTIONS (4)
  - Loss of consciousness [Recovered/Resolved]
  - Blood pressure abnormal [Recovered/Resolved]
  - Dizziness [Recovered/Resolved]
  - Expired product administered [Unknown]
